FAERS Safety Report 6907831-4 (Version None)
Quarter: 2010Q3

REPORT INFORMATION
  Report Type: 
  Country: None (occurrence: None)
  Receive Date: 20100805
  Receipt Date: 20100726
  Transmission Date: 20110219
  Serious: Yes (Life-Threatening)
  Sender: FDA-Public Use
  Company Number: IT-TEVA-243165ISR

PATIENT
  Sex: Female

DRUGS (4)
  1. PACLITAXEL [Suspect]
     Route: 042
     Dates: start: 20100721, end: 20100721
  2. PACLITAXEL [Suspect]
     Route: 042
     Dates: start: 20100721, end: 20100721
  3. HYDROCORTISONE (FLEBOCORTID RICHTER) [Concomitant]
     Route: 051
  4. CHLORPHENIRAMINE MALEATE [Concomitant]
     Route: 030

REACTIONS (2)
  - BRONCHOSTENOSIS [None]
  - HEADACHE [None]
